FAERS Safety Report 6266793-6 (Version None)
Quarter: 2009Q3

REPORT INFORMATION
  Report Type: 
  Country: None (occurrence: None)
  Receive Date: 20090709
  Receipt Date: 20090709
  Transmission Date: 20100115
  Serious: Yes (Other)
  Sender: FDA-Public Use
  Company Number: None

PATIENT
  Age: 70 Year
  Sex: Male
  Weight: 86.1834 kg

DRUGS (1)
  1. JANUVIA [Suspect]
     Indication: TYPE 2 DIABETES MELLITUS
     Dosage: 100 M.G. 1 TIME PER DAY
     Dates: start: 20090501, end: 20090609

REACTIONS (4)
  - ABDOMINAL PAIN UPPER [None]
  - INTRA-ABDOMINAL PRESSURE INCREASED [None]
  - MUSCULOSKELETAL CHEST PAIN [None]
  - NAUSEA [None]
